FAERS Safety Report 8840675 (Version 1)
Quarter: 2012Q4

REPORT INFORMATION
  Report Type: 
  Country: DE (occurrence: DE)
  Receive Date: 20121015
  Receipt Date: 20121015
  Transmission Date: 20130627
  Serious: Yes (Other)
  Sender: FDA-Public Use
  Company Number: DE-UCBSA-068525

PATIENT
  Sex: Female
  Weight: 64 kg

DRUGS (1)
  1. NEUPRO [Suspect]
     Indication: RESTLESS LEGS SYNDROME
     Dosage: DOSE: 1 MG/24 H
     Dates: start: 20120912

REACTIONS (3)
  - Atrial flutter [Not Recovered/Not Resolved]
  - Terminal insomnia [Not Recovered/Not Resolved]
  - Restlessness [Not Recovered/Not Resolved]
